FAERS Safety Report 6668733-4 (Version None)
Quarter: 2010Q2

REPORT INFORMATION
  Report Type: 
  Country: None (occurrence: None)
  Receive Date: 20100406
  Receipt Date: 20100326
  Transmission Date: 20101027
  Serious: Yes (Hospitalization)
  Sender: FDA-Public Use
  Company Number: US-BAYER-201013567BCC

PATIENT
  Age: 81 Year
  Sex: Male
  Weight: 68 kg

DRUGS (2)
  1. PHILLIPS MILK OF MAGNESIA ORIGINAL LIQUID [Suspect]
     Indication: CONSTIPATION
     Dosage: CONSUMER TOOK 1/2 OF THE MEASURING CUP ON A BOTTLE OF THE PRODUCT
     Route: 048
     Dates: start: 20100301
  2. FIBERCON [Concomitant]

REACTIONS (1)
  - BOWEL MOVEMENT IRREGULARITY [None]
